FAERS Safety Report 7398533-1 (Version None)
Quarter: 2011Q2

REPORT INFORMATION
  Report Type: 
  Country: None (occurrence: None)
  Receive Date: 20110407
  Receipt Date: 20110329
  Transmission Date: 20111010
  Serious: No
  Sender: FDA-Public Use
  Company Number: US-BIOGENIDEC-2011BI005899

PATIENT
  Sex: Female

DRUGS (1)
  1. TYSABRI [Suspect]
     Indication: MULTIPLE SCLEROSIS
     Route: 042
     Dates: start: 20101215

REACTIONS (16)
  - MOBILITY DECREASED [None]
  - AMNESIA [None]
  - INSOMNIA [None]
  - MULTIPLE SCLEROSIS RELAPSE [None]
  - TENDON PAIN [None]
  - ATTENTION DEFICIT/HYPERACTIVITY DISORDER [None]
  - PRURITUS [None]
  - NAUSEA [None]
  - MALAISE [None]
  - STRESS [None]
  - CONSTIPATION [None]
  - COORDINATION ABNORMAL [None]
  - ANIMAL BITE [None]
  - MUSCULOSKELETAL DISORDER [None]
  - HYPERSOMNIA [None]
  - HYPERSENSITIVITY [None]
